FAERS Safety Report 5623446-2 (Version None)
Quarter: 2008Q1

REPORT INFORMATION
  Report Type: 
  Country: None (occurrence: None)
  Receive Date: 20080207
  Receipt Date: 20080129
  Transmission Date: 20080703
  Serious: Yes (Other)
  Sender: FDA-Public Use
  Company Number: CIO08001437

PATIENT
  Sex: Female

DRUGS (6)
  1. NYQUIL OR NYQUIL D COLD/FLU RELIEF ALCOHOL 10%, ORIGINAL FLAVOR(ETHANO [Suspect]
     Dosage: 11.25 ML, 1 ONLY, ORAL
     Route: 048
  2. PAXIL [Concomitant]
  3. SUBUTEX [Concomitant]
  4. WELLBUTRIN [Concomitant]
  5. AMLODIPINE [Concomitant]
  6. SYNTHROID [Concomitant]

REACTIONS (2)
  - ADVERSE DRUG REACTION [None]
  - CHOLINERGIC SYNDROME [None]
